FAERS Safety Report 20110257 (Version 2)
Quarter: 2021Q4

REPORT INFORMATION
  Report Type: Report from Study
  Country: IT (occurrence: IT)
  Receive Date: 20211124
  Receipt Date: 20211202
  Transmission Date: 20220303
  Serious: Yes (Hospitalization)
  Sender: FDA-Public Use
  Company Number: None

PATIENT
  Age: 75 Year
  Sex: Female

DRUGS (6)
  1. PANTOPRAZOLE [Suspect]
     Active Substance: PANTOPRAZOLE
     Indication: Product used for unknown indication
     Dosage: 20 MILLIGRAM, TOTAL
     Dates: start: 20210720, end: 20210720
  2. PANTOPRAZOLE [Suspect]
     Active Substance: PANTOPRAZOLE
     Dosage: 1120 MILLIGRAM, TOTAL
     Dates: start: 20210720, end: 20210720
  3. OLMESARTAN MEDOXOMIL [Suspect]
     Active Substance: OLMESARTAN MEDOXOMIL
     Indication: Product used for unknown indication
     Dosage: 10 MILLIGRAM, TOTAL
     Dates: start: 20210720, end: 20210720
  4. OLMESARTAN MEDOXOMIL [Suspect]
     Active Substance: OLMESARTAN MEDOXOMIL
     Dosage: 280 MILLIGRAM, TOTAL
     Dates: start: 20210720, end: 20210720
  5. TEGRETOL [Suspect]
     Active Substance: CARBAMAZEPINE
     Indication: Product used for unknown indication
     Dosage: 400 MILLIGRAM, TOTAL
     Dates: start: 20210720, end: 20210720
  6. TEGRETOL [Suspect]
     Active Substance: CARBAMAZEPINE
     Dosage: 8000 MILLIGRAM, TOTAL
     Dates: start: 20210720, end: 20210720

REACTIONS (2)
  - Hypotension [Unknown]
  - Drug abuse [Unknown]

NARRATIVE: CASE EVENT DATE: 20210720
